FAERS Safety Report 8818591 (Version 1)
Quarter: 2012Q4

REPORT INFORMATION
  Report Type: 
  Country: US (occurrence: US)
  Receive Date: 20121001
  Receipt Date: 20121001
  Transmission Date: 20130627
  Serious: Yes (Disabling, Other)
  Sender: FDA-Public Use
  Company Number: US-PFIZER INC-2012241903

PATIENT
  Age: 79 Year
  Sex: Female
  Weight: 82.99 kg

DRUGS (8)
  1. CELEBREX [Suspect]
     Indication: ARTHRITIS
     Dosage: 200 mg, daily
     Dates: start: 20120917, end: 20120920
  2. GABAPENTIN [Suspect]
     Indication: ARTHRITIS
     Dosage: UNK
  3. LIPITOR [Suspect]
     Indication: LIPID METABOLISM DISORDER
     Dosage: UNK
  4. ZOCOR [Suspect]
     Indication: LIPID METABOLISM DISORDER
     Dosage: UNK
  5. CLOPIDOGREL BISULFATE (PLAVIX) [Suspect]
     Indication: CARDIAC DISORDER
     Dosage: UNK, daily
  6. ATENOLOL [Concomitant]
     Indication: CARDIAC DISORDER
     Dosage: 25 mg, daily
  7. ASPIRIN [Concomitant]
     Indication: CARDIAC DISORDER
     Dosage: 81 mg, daily
  8. HYDROCHLOROTHIAZIDE [Concomitant]
     Indication: OEDEMA PERIPHERAL
     Dosage: 25 mg, daily

REACTIONS (13)
  - Movement disorder [Not Recovered/Not Resolved]
  - Muscle injury [Unknown]
  - Gait disturbance [Not Recovered/Not Resolved]
  - Weight increased [Unknown]
  - Disturbance in attention [Unknown]
  - Hallucination [Unknown]
  - Oedema peripheral [Not Recovered/Not Resolved]
  - Abdominal pain upper [Not Recovered/Not Resolved]
  - Dyspnoea [Unknown]
  - Nausea [Not Recovered/Not Resolved]
  - Pain in extremity [Not Recovered/Not Resolved]
  - Drug administration error [Unknown]
  - Drug ineffective [Unknown]
